FAERS Safety Report 5402506-5 (Version None)
Quarter: 2007Q3

REPORT INFORMATION
  Report Type: 
  Country: None (occurrence: None)
  Receive Date: 20070801
  Receipt Date: 20060829
  Transmission Date: 20080115
  Serious: No
  Sender: FDA-Public Use
  Company Number: A0618540A

PATIENT

DRUGS (1)
  1. IMITREX [Suspect]
     Indication: HEADACHE
     Dosage: 50MG UNKNOWN
     Route: 048

REACTIONS (1)
  - MUSCULAR WEAKNESS [None]
